FAERS Safety Report 7673925-1 (Version None)
Quarter: 2011Q3

REPORT INFORMATION
  Report Type: 
  Country: None (occurrence: None)
  Receive Date: 20110810
  Receipt Date: 20110418
  Transmission Date: 20111222
  Serious: No
  Sender: FDA-Public Use
  Company Number: US-GLAXOSMITHKLINE-A0924249A

PATIENT
  Sex: Female

DRUGS (1)
  1. PAXIL [Suspect]
     Dosage: 20MGD PER DAY
     Route: 065

REACTIONS (12)
  - WITHDRAWAL SYNDROME [None]
  - WEIGHT INCREASED [None]
  - DIZZINESS [None]
  - QUALITY OF LIFE DECREASED [None]
  - PARAESTHESIA [None]
  - CHILLS [None]
  - DENTAL CARIES [None]
  - FEELING ABNORMAL [None]
  - TOOTH DISORDER [None]
  - LIBIDO DECREASED [None]
  - TREATMENT NONCOMPLIANCE [None]
  - TOOTHACHE [None]
